FAERS Safety Report 8398446 (Version 5)
Quarter: 2013Q3

REPORT INFORMATION
  Report Type: Spontaneous
  Country: US (occurrence: US)
  Receive Date: 20120209
  Receipt Date: 20130925
  Transmission Date: 20140515
  Serious: Yes (Hospitalization, Other)
  Sender: FDA-Public Use
  Company Number: US-ROCHE-792631

PATIENT
  Sex: Female
  Weight: 72.64 kg

DRUGS (1)
  1. ACCUTANE [Suspect]
     Indication: ACNE CYSTIC
     Route: 065
     Dates: start: 19910101, end: 19931231

REACTIONS (7)
  - Emotional distress [Unknown]
  - Cervical dysplasia [Unknown]
  - Colitis ulcerative [Unknown]
  - Inflammatory bowel disease [Unknown]
  - Skin atrophy [Unknown]
  - Depression [Unknown]
  - Dry eye [Unknown]
